FAERS Safety Report 9284663 (Version 3)
Quarter: 2013Q3

REPORT INFORMATION
  Report Type: Spontaneous
  Country: US (occurrence: US)
  Receive Date: 20130513
  Receipt Date: 20130725
  Transmission Date: 20140515
  Serious: No
  Sender: FDA-Public Use
  Company Number: US-009507513-1304USA008545

PATIENT
  Age: 48 Year
  Sex: Male
  Weight: 64.85 kg

DRUGS (8)
  1. PEGINTRON [Suspect]
     Dosage: UNK
     Dates: start: 20130415
  2. PEGINTRON [Suspect]
     Dosage: 150 MICROGRAM/0.5 ML, QW
     Route: 058
  3. VICTRELIS [Suspect]
     Dosage: 200 MG, 4 CAPSULES, TID
     Route: 048
     Dates: start: 201304
  4. RIBASPHERE [Suspect]
     Dosage: 200 MG, UNKNOWN
  5. CALCIUM (UNSPECIFIED) [Concomitant]
     Dosage: 500 MG
  6. OMEGA-3 MARINE TRIGLYCERIDES [Concomitant]
     Dosage: UNK
  7. OMEGA-3 [Concomitant]
  8. VITAMINS (UNSPECIFIED) [Concomitant]

REACTIONS (12)
  - Neck pain [Unknown]
  - Musculoskeletal discomfort [Unknown]
  - Drug administration error [Unknown]
  - Drug dose omission [Unknown]
  - Influenza like illness [Unknown]
  - Arthralgia [Unknown]
  - Pain [Unknown]
  - Weight decreased [Unknown]
  - Rash [Unknown]
  - Dysgeusia [Unknown]
  - Weight decreased [Unknown]
  - Asthenia [Unknown]
